FAERS Safety Report 7970125-2 (Version None)
Quarter: 2011Q4

REPORT INFORMATION
  Report Type: 
  Country: None (occurrence: None)
  Receive Date: 20111122
  Receipt Date: 20110726
  Transmission Date: 20120403
  Serious: No
  Sender: FDA-Public Use
  Company Number: PHHY2011US41142

PATIENT
  Age: 49 Year
  Sex: Female

DRUGS (2)
  1. GILENYA [Suspect]
     Indication: MULTIPLE SCLEROSIS
     Dosage: 0.5 MG, QD, ORAL
     Route: 048
     Dates: start: 20110511
  2. ACETAMINOPHEN [Concomitant]

REACTIONS (7)
  - PRESBYOPIA [None]
  - DIZZINESS [None]
  - VISION BLURRED [None]
  - MYOPIA [None]
  - ASTIGMATISM [None]
  - HEADACHE [None]
  - HYPERMETROPIA [None]
